FAERS Safety Report 6166483-4 (Version None)
Quarter: 2009Q2

REPORT INFORMATION
  Report Type: 
  Country: None (occurrence: None)
  Receive Date: 20090424
  Receipt Date: 20090417
  Transmission Date: 20091009
  Serious: Yes (Other)
  Sender: FDA-Public Use
  Company Number: AU-SANOFI-SYNTHELABO-A01200904178

PATIENT
  Sex: Male

DRUGS (6)
  1. SOMAC [Concomitant]
     Indication: GASTROOESOPHAGEAL REFLUX DISEASE
     Dosage: UNK
     Route: 065
  2. TRITACE [Concomitant]
     Indication: HYPERTENSION
     Dosage: UNK
     Route: 065
  3. PROGOUT [Concomitant]
     Indication: GOUT
     Dosage: UNK
     Route: 065
  4. LIPITOR [Concomitant]
     Indication: HYPERCHOLESTEROLAEMIA
     Dosage: UNK
     Route: 065
  5. CARDIPRIN [Concomitant]
     Indication: DRUG USE FOR UNKNOWN INDICATION
     Dosage: UNK
     Route: 065
  6. PLAVIX [Suspect]
     Indication: DRUG USE FOR UNKNOWN INDICATION
     Route: 048
     Dates: start: 20041201

REACTIONS (1)
  - LUNG CARCINOMA CELL TYPE UNSPECIFIED RECURRENT [None]
